FAERS Safety Report 22201582 (Version 1)
Quarter: 2023Q2

REPORT INFORMATION
  Report Type: Spontaneous
  Country: US (occurrence: None)
  Receive Date: 20230411
  Receipt Date: 20230411
  Transmission Date: 20230721
  Serious: No
  Sender: FDA-Public Use
  Company Number: None

PATIENT
  Age: 26 Year
  Sex: Male
  Weight: 94.68 kg

DRUGS (3)
  1. CANNABIS SATIVA SUBSP. INDICA TOP [Suspect]
     Active Substance: CANNABIS SATIVA SUBSP. INDICA TOP
     Indication: Anxiety
     Dosage: FREQUENCY : AS NEEDED;?
     Route: 048
     Dates: start: 20190101, end: 20221208
  2. SERTRALINE HYDROCHLORIDE [Concomitant]
     Active Substance: SERTRALINE HYDROCHLORIDE
  3. hydroxyzine 10 mg [Concomitant]

REACTIONS (3)
  - Dissociation [None]
  - Apathy [None]
  - Panic attack [None]

NARRATIVE: CASE EVENT DATE: 20221208
